FAERS Safety Report 7214821 (Version 2)
Quarter: 2013Q3

REPORT INFORMATION
  Report Type: Spontaneous
  Country: US (occurrence: US)
  Receive Date: 20091214
  Receipt Date: 20130829
  Transmission Date: 20140515
  Serious: Yes (Hospitalization)
  Sender: FDA-Public Use
  Company Number: US-BRISTOL-MYERS SQUIBB COMPANY-14434724

PATIENT
  Age: 66 Year
  Sex: Male
  Weight: 102.94 kg

DRUGS (11)
  1. ABILIFY TABS 2 MG [Suspect]
     Indication: DEPRESSION
     Dosage: TAKING FROM 4-5WEEKS
  2. PRISTIQ [Concomitant]
  3. CLORAZEPATE [Concomitant]
  4. NIASPAN [Concomitant]
  5. ACTOS [Concomitant]
  6. AMARYL [Concomitant]
  7. ZETIA [Concomitant]
  8. TRICOR [Concomitant]
  9. EFFEXOR [Concomitant]
  10. KLONOPIN [Concomitant]
     Dosage: 2 AT NIGHT
  11. RITALIN [Concomitant]

REACTIONS (7)
  - Stent placement [Unknown]
  - Insomnia [Unknown]
  - Fatigue [Unknown]
  - Constipation [Unknown]
  - Vision blurred [Unknown]
  - Somnolence [Unknown]
  - Drug ineffective [Unknown]
